FAERS Safety Report 14608295 (Version 2)
Quarter: 2018Q1

REPORT INFORMATION
  Report Type: Spontaneous
  Country: US (occurrence: US)
  Receive Date: 20180307
  Receipt Date: 20180309
  Transmission Date: 20180509
  Serious: Yes (Other)
  Sender: FDA-Public Use
  Company Number: US-PFIZER INC-2018092981

PATIENT
  Age: 61 Year
  Sex: Female
  Weight: 88.45 kg

DRUGS (6)
  1. CARVEDILOL. [Concomitant]
     Active Substance: CARVEDILOL
     Indication: BLOOD PRESSURE ABNORMAL
     Dosage: 2.5 MG, THICE DAILY
     Route: 048
     Dates: start: 2013
  2. FUROSEMIDE. [Concomitant]
     Active Substance: FUROSEMIDE
     Indication: HYPERTENSION
     Dosage: 20 MG, ONCE DAILY
     Route: 048
     Dates: start: 2008
  3. LISINOPRIL. [Concomitant]
     Active Substance: LISINOPRIL
     Indication: HYPERTENSION
     Dosage: 10 MG, ONCE DAILY
     Route: 048
  4. LYRICA [Suspect]
     Active Substance: PREGABALIN
     Indication: SCIATICA
     Dosage: 100 MG, TWICE DAILY
     Route: 048
  5. PRENATAL VITAMINS [Concomitant]
     Active Substance: VITAMINS
     Indication: EPILEPSY
     Dosage: 1 DF, ONCE DAILY
     Route: 048
     Dates: start: 2008
  6. LYRICA [Suspect]
     Active Substance: PREGABALIN
     Indication: SEIZURE

REACTIONS (5)
  - Memory impairment [Recovered/Resolved]
  - Impaired driving ability [Recovered/Resolved]
  - Gastric infection [Recovered/Resolved]
  - Seizure [Recovered/Resolved]
  - Dehydration [Unknown]

NARRATIVE: CASE EVENT DATE: 201708
